FAERS Safety Report 4323456-1 (Version None)
Quarter: 2004Q1

REPORT INFORMATION
  Report Type: 
  Country: None (occurrence: None)
  Receive Date: 20040325
  Receipt Date: 20040310
  Transmission Date: 20041129
  Serious: Yes (Other)
  Sender: FDA-Public Use
  Company Number: JP-ROCHE-361424

PATIENT
  Age: 3 Year
  Sex: Female
  Weight: 14 kg

DRUGS (12)
  1. TAMIFLU [Suspect]
     Route: 048
     Dates: start: 20040216, end: 20040218
  2. TAMIFLU [Suspect]
     Route: 048
     Dates: start: 20040213, end: 20040213
  3. THEO-DUR [Concomitant]
     Route: 048
     Dates: start: 20011031
  4. SOLU-MEDROL [Concomitant]
     Route: 051
  5. UNASYN [Concomitant]
     Route: 051
  6. CLARITHROMYCIN [Concomitant]
     Route: 048
  7. MUCOSAL [Concomitant]
     Route: 048
  8. ONON [Concomitant]
     Route: 048
     Dates: start: 20011031
  9. HOKUNALIN [Concomitant]
     Route: 048
  10. ASVERIN [Concomitant]
     Route: 048
  11. MUCODYNE [Concomitant]
     Route: 048
  12. KETOTIFEN [Concomitant]

REACTIONS (2)
  - ECZEMA [None]
  - SWELLING FACE [None]
